FAERS Safety Report 15657095 (Version 2)
Quarter: 2019Q2

REPORT INFORMATION
  Report Type: Spontaneous
  Country: US (occurrence: US)
  Receive Date: 20181126
  Receipt Date: 20190521
  Transmission Date: 20190711
  Serious: Yes (Other)
  Sender: FDA-Public Use
  Company Number: US-SA-2018SA154936

PATIENT
  Sex: Female

DRUGS (1)
  1. DUPIXENT [Suspect]
     Active Substance: DUPILUMAB
     Dosage: UNK
     Route: 058
     Dates: start: 201801

REACTIONS (5)
  - Eczema [Unknown]
  - Disease recurrence [Unknown]
  - Erythema [Unknown]
  - Feeling hot [Unknown]
  - Inflammation [Unknown]

NARRATIVE: CASE EVENT DATE: 2018
